FAERS Safety Report 14279819 (Version 2)
Quarter: 2018Q1

REPORT INFORMATION
  Report Type: Report from Study
  Country: None (occurrence: CA)
  Receive Date: 20171213
  Receipt Date: 20180312
  Transmission Date: 20180508
  Serious: Yes (Other)
  Sender: FDA-Public Use
  Company Number: CA-ABBVIE-17K-028-2188289-00

PATIENT
  Sex: Male

DRUGS (6)
  1. PREDNISONE. [Suspect]
     Active Substance: PREDNISONE
     Indication: PYODERMA GANGRENOSUM
     Dosage: WEANING DOSE
     Route: 048
     Dates: start: 2017, end: 2017
  2. HUMIRA [Suspect]
     Active Substance: ADALIMUMAB
     Indication: HIDRADENITIS
     Route: 058
     Dates: start: 20170201
  3. PREDNISONE. [Suspect]
     Active Substance: PREDNISONE
     Route: 048
  4. PREDNISONE. [Suspect]
     Active Substance: PREDNISONE
     Route: 048
     Dates: start: 2017, end: 2017
  5. PREDNISONE. [Suspect]
     Active Substance: PREDNISONE
     Dosage: WEANING DOWN
     Route: 048
     Dates: start: 2017, end: 2017
  6. PREDNISONE. [Suspect]
     Active Substance: PREDNISONE
     Dosage: WEANING DOWN
     Route: 048
     Dates: start: 2017

REACTIONS (12)
  - Poor quality sleep [Not Recovered/Not Resolved]
  - Skin discolouration [Not Recovered/Not Resolved]
  - Wound infection staphylococcal [Unknown]
  - Dry skin [Not Recovered/Not Resolved]
  - Perforation [Not Recovered/Not Resolved]
  - Pyoderma gangrenosum [Not Recovered/Not Resolved]
  - Rectal discharge [Recovering/Resolving]
  - Weight decreased [Recovering/Resolving]
  - Fatigue [Not Recovered/Not Resolved]
  - Tremor [Recovered/Resolved]
  - Hidradenitis [Not Recovered/Not Resolved]
  - Injection site reaction [Not Recovered/Not Resolved]

NARRATIVE: CASE EVENT DATE: 2017
